FAERS Safety Report 10448397 (Version 1)
Quarter: 2014Q3

REPORT INFORMATION
  Report Type: Spontaneous
  Country: GB (occurrence: GB)
  Receive Date: 20140911
  Receipt Date: 20140911
  Transmission Date: 20150326
  Serious: Yes (Hospitalization)
  Sender: FDA-Public Use
  Company Number: GB-ABBVIE-14K-167-1280871-00

PATIENT
  Sex: Female

DRUGS (1)
  1. HUMIRA [Suspect]
     Active Substance: ADALIMUMAB
     Indication: PRODUCT USED FOR UNKNOWN INDICATION

REACTIONS (7)
  - Memory impairment [Unknown]
  - Fatigue [Unknown]
  - Dizziness [Unknown]
  - Pallor [Unknown]
  - Speech disorder [Unknown]
  - Derealisation [Unknown]
  - Hallucination, visual [Unknown]
